FAERS Safety Report 9660877 (Version 1)
Quarter: 2013Q4

REPORT INFORMATION
  Report Type: Spontaneous
  Country: US (occurrence: US)
  Receive Date: 20131031
  Receipt Date: 20131031
  Transmission Date: 20140711
  Serious: Yes (Death)
  Sender: FDA-Public Use
  Company Number: US-PFIZER INC-2013309883

PATIENT
  Age: 60 Year
  Sex: Female

DRUGS (1)
  1. REVATIO [Suspect]
     Indication: RESPIRATORY FAILURE
     Dosage: 20 MG, 3X/DAY
     Dates: start: 20130805

REACTIONS (2)
  - Cardiac disorder [Fatal]
  - Off label use [Unknown]
